FAERS Safety Report 4505083-6 (Version None)
Quarter: 2004Q4

REPORT INFORMATION
  Report Type: 
  Country: None (occurrence: None)
  Receive Date: 20041117
  Receipt Date: 20041117
  Transmission Date: 20050328
  Serious: Yes (Hospitalization)
  Sender: FDA-Public Use
  Company Number: None

PATIENT
  Age: 81 Year
  Sex: Male

DRUGS (2)
  1. ETOPOSIDE [Suspect]
     Indication: CARCINOMA
     Dosage: 198 MG QD
  2. CARBOPLATIN [Suspect]
     Indication: CARCINOMA
     Dosage: 480 MG  ONCE

REACTIONS (1)
  - NEUTROPENIA [None]
